FAERS Safety Report 16776942 (Version 2)
Quarter: 2019Q3

REPORT INFORMATION
  Report Type: Spontaneous
  Country: US (occurrence: US)
  Receive Date: 20190905
  Receipt Date: 20190905
  Transmission Date: 20191005
  Serious: Yes (Other)
  Sender: FDA-Public Use
  Company Number: US-CELGENEUS-USA-20190900495

PATIENT
  Age: 77 Year
  Sex: Female
  Weight: 72 kg

DRUGS (2)
  1. REVLIMID [Suspect]
     Active Substance: LENALIDOMIDE
     Indication: MYELODYSPLASTIC SYNDROME
  2. REVLIMID [Suspect]
     Active Substance: LENALIDOMIDE
     Indication: LEUKAEMIA
     Dosage: 2.5 MILLIGRAM
     Route: 048
     Dates: start: 20190821, end: 20190825

REACTIONS (6)
  - Swelling face [Unknown]
  - Visual impairment [Unknown]
  - Paraesthesia [Unknown]
  - Rash pruritic [Unknown]
  - Pain of skin [Unknown]
  - Headache [Unknown]

NARRATIVE: CASE EVENT DATE: 20190823
